FAERS Safety Report 12752520 (Version 1)
Quarter: 2016Q3

REPORT INFORMATION
  Report Type: Report from Study
  Country: US (occurrence: US)
  Receive Date: 20160916
  Receipt Date: 20160916
  Transmission Date: 20161109
  Serious: Yes (Other)
  Sender: FDA-Public Use
  Company Number: US-ROCHE-1670552

PATIENT
  Age: 52 Year
  Sex: Male
  Weight: 78.9 kg

DRUGS (2)
  1. TEMSIROLIMUS [Suspect]
     Active Substance: TEMSIROLIMUS
     Indication: CARCINOID TUMOUR
     Dosage: ON DAYS 1, 8, 15, 22?28 DAYS CYCLE?DATE OF LAST DOSE PRIOR TO SAE: 05/NOV/2010
     Route: 042
     Dates: start: 20100528
  2. BEVACIZUMAB [Suspect]
     Active Substance: BEVACIZUMAB
     Indication: CARCINOID TUMOUR
     Dosage: OVER 30-90 MIN ON DAYS 1 AND 15?28 DAYS CYCLE?DATE OF LAST DOSE PRIOR TO SAE: 29/OCT/2010
     Route: 042
     Dates: start: 20100528

REACTIONS (6)
  - Sinus disorder [Unknown]
  - Epistaxis [Unknown]
  - Gout [Unknown]
  - Diarrhoea [Unknown]
  - Hypertension [Unknown]
  - Pulmonary haemorrhage [Unknown]

NARRATIVE: CASE EVENT DATE: 20101106
